FAERS Safety Report 4559016-7 (Version None)
Quarter: 2005Q1

REPORT INFORMATION
  Report Type: 
  Country: None (occurrence: None)
  Receive Date: 20050124
  Receipt Date: 20050113
  Transmission Date: 20050727
  Serious: Yes (Hospitalization)
  Sender: FDA-Public Use
  Company Number: US-BRISTOL-MYERS SQUIBB COMPANY-12828729

PATIENT
  Age: 60 Year
  Sex: Male

DRUGS (10)
  1. METOPROLOL TARTRATE [Suspect]
     Indication: HYPERTENSION
  2. PRINIVIL [Suspect]
     Indication: HYPERTENSION
     Route: 048
     Dates: end: 20030915
  3. HYDROCHLOROTHIAZIDE [Suspect]
     Indication: HYPERTENSION
     Route: 048
     Dates: start: 20030902, end: 20030915
  4. ASPIRIN [Concomitant]
  5. FEXOFENADINE HCL [Concomitant]
  6. FINASTERIDE [Concomitant]
  7. GEMFIBROZIL [Concomitant]
  8. GLYBURIDE [Concomitant]
  9. LOVASTATIN [Concomitant]
  10. PROPOXYPHENE NAPSYLATE [Concomitant]

REACTIONS (4)
  - ASTHENIA [None]
  - DEHYDRATION [None]
  - DIZZINESS [None]
  - HYPOTENSION [None]
